FAERS Safety Report 17224670 (Version 1)
Quarter: 2020Q1

REPORT INFORMATION
  Report Type: Report from Study
  Country: US (occurrence: US)
  Receive Date: 20200102
  Receipt Date: 20200102
  Transmission Date: 20200409
  Serious: Yes (Death, Life-Threatening)
  Sender: FDA-Public Use
  Company Number: US-PFIZER INC-2019557832

PATIENT

DRUGS (3)
  1. OBATOCLAX [Suspect]
     Active Substance: OBATOCLAX
     Indication: SMALL CELL LUNG CANCER
     Dosage: 30 MG, CYCLIC INFUSED OVER 3H ON DAYS 1-3; FOR 6 CYCLES
  2. CARBOPLATIN. [Suspect]
     Active Substance: CARBOPLATIN
     Indication: SMALL CELL LUNG CANCER
     Dosage: UNK, CYCLIC CARBOPLATIN AUC 5 WAS ADMINISTERED ON DAY 1 (TREATMENT WAS CONTINUED FOR SIX CYCLES)
  3. ETOPOSIDE. [Suspect]
     Active Substance: ETOPOSIDE
     Indication: SMALL CELL LUNG CANCER
     Dosage: 100 MG/M2, CYCLIC (ETOPOSIDE 100 MG/M2 ON DAYS 1-3 (TREATMENT WAS CONTINUED FOR SIX CYCLES)

REACTIONS (1)
  - Pneumonia [Fatal]
